FAERS Safety Report 26092169 (Version 1)
Quarter: 2025Q4

REPORT INFORMATION
  Report Type: Spontaneous
  Country: US (occurrence: US)
  Receive Date: 20251126
  Receipt Date: 20251126
  Transmission Date: 20260118
  Serious: Yes (Hospitalization, Other)
  Sender: AMGEN
  Company Number: US-AMGEN-USASP2025230769

PATIENT
  Age: 33 Year
  Sex: Female

DRUGS (3)
  1. RITUXIMAB [Suspect]
     Active Substance: RITUXIMAB
     Indication: Cerebral infarction
     Dosage: 375  MILLIGRAM/SQ. METER (2 DOSES + 4 DOSES)
     Route: 065
  2. RITUXIMAB [Suspect]
     Active Substance: RITUXIMAB
     Indication: ADAMTS13 activity decreased
  3. ASPIRIN [Concomitant]
     Active Substance: ASPIRIN

REACTIONS (6)
  - Microangiopathic haemolytic anaemia [Unknown]
  - Neutropenia [Unknown]
  - Cerebrovascular accident [Recovered/Resolved]
  - Drug effective for unapproved indication [Unknown]
  - ADAMTS13 activity decreased [Recovered/Resolved]
  - Off label use [Unknown]
